FAERS Safety Report 9705605 (Version 2)
Quarter: 2015Q3

REPORT INFORMATION
  Report Type: Spontaneous
  Country: US (occurrence: US)
  Receive Date: 20131122
  Receipt Date: 20150803
  Transmission Date: 20151125
  Serious: No
  Sender: FDA-Public Use
  Company Number: US-GILEAD-2008-0017145

PATIENT
  Age: 55 Year
  Sex: Female
  Weight: 197.77 kg

DRUGS (10)
  1. LETAIRIS [Suspect]
     Active Substance: AMBRISENTAN
     Indication: PULMONARY ARTERIAL HYPERTENSION
     Route: 048
     Dates: start: 20080220, end: 20080704
  2. CLARITIN [Concomitant]
     Active Substance: LORATADINE
  3. ALLOPURINOL. [Concomitant]
     Active Substance: ALLOPURINOL
  4. COUMADIN [Concomitant]
     Active Substance: WARFARIN SODIUM
  5. SYNTHROID [Concomitant]
     Active Substance: LEVOTHYROXINE SODIUM
  6. FLONASE [Concomitant]
     Active Substance: FLUTICASONE PROPIONATE
  7. ALBUTEROL AER HFA [Concomitant]
  8. REVATIO [Concomitant]
     Active Substance: SILDENAFIL CITRATE
  9. SINGULAIR [Concomitant]
     Active Substance: MONTELUKAST SODIUM
  10. NPH INSULIN [Concomitant]
     Active Substance: INSULIN BEEF

REACTIONS (1)
  - Oedema peripheral [None]

NARRATIVE: CASE EVENT DATE: 20080401
